FAERS Safety Report 17255878 (Version 2)
Quarter: 2020Q1

REPORT INFORMATION
  Report Type: Report from Study
  Country: CA (occurrence: CA)
  Receive Date: 20200110
  Receipt Date: 20200121
  Transmission Date: 20200409
  Serious: Yes (Death, Hospitalization)
  Sender: FDA-Public Use
  Company Number: CA-TAIHO ONCOLOGY  INC-EU-2019-04004

PATIENT
  Age: 55 Year
  Sex: Male
  Weight: 60.5 kg

DRUGS (2)
  1. LONSURF [Suspect]
     Active Substance: TIPIRACIL HYDROCHLORIDE\TRIFLURIDINE
     Indication: COLORECTAL CANCER METASTATIC
     Dosage: CYCLE 1
     Route: 048
     Dates: start: 20191121, end: 20191218
  2. LONSURF [Suspect]
     Active Substance: TIPIRACIL HYDROCHLORIDE\TRIFLURIDINE
     Indication: COLORECTAL CANCER
     Dosage: CYCLE 2; THERAPY END DATE REPORTED AS : 15/JAN/2020
     Route: 048
     Dates: start: 20191219

REACTIONS (7)
  - Abdominal distension [Unknown]
  - Diarrhoea [Unknown]
  - Death [Fatal]
  - Constipation [Not Recovered/Not Resolved]
  - Pyrexia [Unknown]
  - Fatigue [Unknown]
  - Abdominal pain [Unknown]

NARRATIVE: CASE EVENT DATE: 20200110
